FAERS Safety Report 13006744 (Version 1)
Quarter: 2016Q4

REPORT INFORMATION
  Report Type: Spontaneous
  Country: GB (occurrence: GB)
  Receive Date: 20161207
  Receipt Date: 20161207
  Transmission Date: 20170207
  Serious: Yes (Life-Threatening, Hospitalization, Disabling)
  Sender: FDA-Public Use
  Company Number: GB-TEVA-716321ACC

PATIENT
  Age: 70 Year
  Sex: Male
  Weight: 83 kg

DRUGS (10)
  1. LANSOPRAZOLE. [Concomitant]
     Active Substance: LANSOPRAZOLE
  2. MOMETASONE FUROATE. [Concomitant]
     Active Substance: MOMETASONE FUROATE
  3. SERETIDE [Concomitant]
     Active Substance: FLUTICASONE PROPIONATE\SALMETEROL XINAFOATE
  4. TAMSULOSIN [Concomitant]
     Active Substance: TAMSULOSIN
  5. FUROSEMIDE. [Concomitant]
     Active Substance: FUROSEMIDE
  6. TIOTROPIUM [Concomitant]
     Active Substance: TIOTROPIUM
  7. WARFARIN [Suspect]
     Active Substance: WARFARIN
     Indication: PULMONARY EMBOLISM
     Route: 048
  8. BOOTS PARACETAMOL [Concomitant]
  9. SALBUTAMOL [Concomitant]
     Active Substance: ALBUTEROL
  10. RAMIPRIL. [Concomitant]
     Active Substance: RAMIPRIL

REACTIONS (3)
  - Hemiparesis [Unknown]
  - Haemorrhage intracranial [Recovered/Resolved with Sequelae]
  - Dysarthria [Unknown]

NARRATIVE: CASE EVENT DATE: 20161105
